FAERS Safety Report 12209344 (Version 2)
Quarter: 2016Q1

REPORT INFORMATION
  Report Type: Report from Study
  Country: US (occurrence: US)
  Receive Date: 20160324
  Receipt Date: 20160331
  Transmission Date: 20160526
  Serious: Yes (Death, Hospitalization)
  Sender: FDA-Public Use
  Company Number: US-B.I. PHARMACEUTICALS,INC./RIDGEFIELD-2015-BI-50082BP

PATIENT
  Sex: Male

DRUGS (3)
  1. ELIQUIS [Concomitant]
     Active Substance: APIXABAN
     Indication: PRODUCT USED FOR UNKNOWN INDICATION
     Route: 065
  2. PREDNISONE. [Concomitant]
     Active Substance: PREDNISONE
     Indication: PRODUCT USED FOR UNKNOWN INDICATION
     Route: 065
  3. OFEV [Suspect]
     Active Substance: NINTEDANIB
     Indication: IDIOPATHIC PULMONARY FIBROSIS
     Dosage: 300 MG
     Route: 048
     Dates: start: 20150709

REACTIONS (9)
  - Idiopathic pulmonary fibrosis [Fatal]
  - Aphonia [Unknown]
  - Diarrhoea [Unknown]
  - Productive cough [Unknown]
  - Pneumonia [Unknown]
  - Peripheral venous disease [Unknown]
  - Cough [Unknown]
  - Nasopharyngitis [Unknown]
  - Pulmonary fibrosis [Unknown]
